FAERS Safety Report 13540920 (Version 1)
Quarter: 2017Q2

REPORT INFORMATION
  Report Type: Spontaneous
  Country: US (occurrence: US)
  Receive Date: 20170512
  Receipt Date: 20170512
  Transmission Date: 20170830
  Serious: No
  Sender: FDA-Public Use
  Company Number: US-JUBILANT CADISTA PHARMACEUTICALS-2016JUB00403

PATIENT
  Sex: Male
  Weight: 70.3 kg

DRUGS (4)
  1. TRAZODONE [Concomitant]
     Active Substance: TRAZODONE HYDROCHLORIDE
     Dosage: 150 MG, 1X/DAY
  2. VALACYCLOVIR HYDROCHLORIDE. [Suspect]
     Active Substance: VALACYCLOVIR HYDROCHLORIDE
     Dosage: 500 MG, 1X/DAY
     Route: 048
     Dates: start: 20161122
  3. ROCEPHIN [Concomitant]
     Active Substance: CEFTRIAXONE SODIUM
     Dosage: 2 G, 1X/DAY
     Route: 042
     Dates: start: 201611
  4. VALACYCLOVIR HYDROCHLORIDE. [Suspect]
     Active Substance: VALACYCLOVIR HYDROCHLORIDE
     Indication: HERPES VIRUS INFECTION
     Dosage: 500 MG, AS NEEDED
     Route: 048
     Dates: start: 201601, end: 2016

REACTIONS (4)
  - Tremor [Not Recovered/Not Resolved]
  - Eructation [Not Recovered/Not Resolved]
  - Pain in extremity [Not Recovered/Not Resolved]
  - Reaction to drug excipients [Not Recovered/Not Resolved]

NARRATIVE: CASE EVENT DATE: 2016
